FAERS Safety Report 8558125-5 (Version None)
Quarter: 2012Q3

REPORT INFORMATION
  Report Type: 
  Country: None (occurrence: None)
  Receive Date: 20120801
  Receipt Date: 20120727
  Transmission Date: 20120928
  Serious: Yes (Other)
  Sender: FDA-Public Use
  Company Number: US-PFIZER INC-2012182962

PATIENT
  Sex: Female
  Weight: 100 kg

DRUGS (3)
  1. BENICAR [Concomitant]
     Indication: HYPERTENSION
     Dosage: UNK, DAILY
  2. REVATIO [Suspect]
     Indication: PULMONARY HYPERTENSION
     Dosage: UNK, 2X/DAY
     Route: 048
     Dates: start: 20111101
  3. SYNTHROID [Concomitant]
     Indication: THYROID DISORDER
     Dosage: UNK, DAILY

REACTIONS (3)
  - TRICHORRHEXIS [None]
  - ALOPECIA [None]
  - DYSPHONIA [None]
